FAERS Safety Report 23756090 (Version 1)
Quarter: 2024Q2

REPORT INFORMATION
  Report Type: Spontaneous
  Country: IL (occurrence: IL)
  Receive Date: 20240418
  Receipt Date: 20240418
  Transmission Date: 20240715
  Serious: Yes (Life-Threatening, Hospitalization)
  Sender: FDA-Public Use
  Company Number: IL-BoehringerIngelheim-2024-BI-022764

PATIENT
  Age: 50 Year
  Sex: Female

DRUGS (1)
  1. EMPAGLIFLOZIN\METFORMIN HYDROCHLORIDE [Suspect]
     Active Substance: EMPAGLIFLOZIN\METFORMIN HYDROCHLORIDE
     Indication: Product used for unknown indication
     Dosage: 12.5/1000

REACTIONS (4)
  - Dyspnoea [Recovering/Resolving]
  - Pneumonia [Recovering/Resolving]
  - Mechanical ventilation [Recovering/Resolving]
  - Diabetic ketoacidosis [Recovering/Resolving]

NARRATIVE: CASE EVENT DATE: 20240404
